FAERS Safety Report 5848948-5 (Version None)
Quarter: 2008Q3

REPORT INFORMATION
  Report Type: 
  Country: None (occurrence: None)
  Receive Date: 20080819
  Receipt Date: 20080811
  Transmission Date: 20090109
  Serious: Yes (Other)
  Sender: FDA-Public Use
  Company Number: PHHY2008JP17756

PATIENT

DRUGS (2)
  1. LAMISIL [Suspect]
     Route: 048
  2. NU-LOTAN [Concomitant]
     Route: 048

REACTIONS (1)
  - HENOCH-SCHONLEIN PURPURA [None]
